FAERS Safety Report 6249327-1 (Version None)
Quarter: 2009Q2

REPORT INFORMATION
  Report Type: 
  Country: None (occurrence: None)
  Receive Date: 20090629
  Receipt Date: 20090616
  Transmission Date: 20091009
  Serious: Yes (Life-Threatening)
  Sender: FDA-Public Use
  Company Number: B0579178A

PATIENT
  Age: 45 Year
  Sex: Female
  Weight: 73.2 kg

DRUGS (1)
  1. ALLI [Suspect]
     Route: 048
     Dates: end: 20090529

REACTIONS (3)
  - DYSPNOEA [None]
  - PHARYNGEAL OEDEMA [None]
  - SWELLING [None]
